FAERS Safety Report 5056792-4 (Version None)
Quarter: 2006Q2

REPORT INFORMATION
  Report Type: 
  Country: None (occurrence: None)
  Receive Date: 20060616
  Receipt Date: 20060508
  Transmission Date: 20061013
  Serious: No
  Sender: FDA-Public Use
  Company Number: 2006US001071

PATIENT
  Sex: Female

DRUGS (8)
  1. VESICARE [Suspect]
     Indication: DRUG USE FOR UNKNOWN INDICATION
     Dosage: UID/QD, ORAL
     Route: 048
     Dates: start: 20060331, end: 20060407
  2. FOSAMAX [Concomitant]
  3. MAXIDEX [Concomitant]
  4. MEVACOR [Concomitant]
  5. TYLENOL W/ CODEINE [Concomitant]
  6. LOPRESSOR [Concomitant]
  7. LEVONTHROID (LEVOTHYROXINE SODIUM) [Concomitant]
  8. GENACOTE [Concomitant]

REACTIONS (1)
  - DRY MOUTH [None]
